FAERS Safety Report 15867736 (Version 1)
Quarter: 2019Q1

REPORT INFORMATION
  Report Type: Spontaneous
  Country: US (occurrence: US)
  Receive Date: 20190125
  Receipt Date: 20190125
  Transmission Date: 20190417
  Serious: No
  Sender: FDA-Public Use
  Company Number: US-BAYER-2019-017944

PATIENT
  Sex: Male

DRUGS (1)
  1. ADEMPAS [Suspect]
     Active Substance: RIOCIGUAT
     Dosage: 2.5 MG

REACTIONS (5)
  - Incorrect dose administered [None]
  - Product supply issue [None]
  - Fall [None]
  - Head injury [None]
  - Product dose omission [None]

NARRATIVE: CASE EVENT DATE: 201901
